FAERS Safety Report 7319099-8 (Version None)
Quarter: 2011Q1

REPORT INFORMATION
  Report Type: 
  Country: None (occurrence: None)
  Receive Date: 20110228
  Receipt Date: 20110216
  Transmission Date: 20110831
  Serious: Yes (Death, Hospitalization, Other)
  Sender: FDA-Public Use
  Company Number: JP-AMGEN-JPNCT2010001240

PATIENT
  Age: 60 Year
  Sex: Male
  Weight: 58 kg

DRUGS (15)
  1. CAMPTOSAR [Suspect]
     Indication: COLORECTAL CANCER
     Route: 041
     Dates: start: 20100904, end: 20101012
  2. LOXONIN [Concomitant]
     Route: 048
  3. HERBAL PREPARATION [Concomitant]
     Route: 048
  4. MAINTATE [Concomitant]
     Route: 048
  5. GRANISETRON HCL [Concomitant]
     Route: 065
  6. FLUOROURACIL [Concomitant]
     Route: 041
     Dates: start: 20100904, end: 20101012
  7. CALCIUM LEVOFOLINATE [Concomitant]
     Indication: COLORECTAL CANCER
     Route: 041
     Dates: start: 20100904, end: 20101012
  8. BLOPRESS [Concomitant]
     Route: 048
  9. ZYLORIC [Concomitant]
     Route: 048
  10. PARIET [Concomitant]
     Route: 048
  11. FLUOROURACIL [Concomitant]
     Indication: COLORECTAL CANCER
     Route: 040
     Dates: start: 20100904, end: 20101012
  12. FLUITRAN [Concomitant]
     Route: 048
  13. PANITUMUMAB [Suspect]
     Indication: COLORECTAL CANCER
     Dosage: 6 MG/KG, Q2WK
     Route: 041
     Dates: start: 20100914, end: 20101012
  14. FLIVAS [Concomitant]
     Route: 048
  15. EVIPROSTAT [Concomitant]
     Route: 048

REACTIONS (5)
  - PARONYCHIA [None]
  - DERMATITIS ACNEIFORM [None]
  - PANCYTOPENIA [None]
  - DIARRHOEA [None]
  - SEPSIS [None]
